FAERS Safety Report 6835915-8 (Version None)
Quarter: 2010Q3

REPORT INFORMATION
  Report Type: 
  Country: None (occurrence: None)
  Receive Date: 20100713
  Receipt Date: 20100707
  Transmission Date: 20110219
  Serious: Yes (Hospitalization)
  Sender: FDA-Public Use
  Company Number: ZA-SANOFI-AVENTIS-2010SA039339

PATIENT
  Age: 0 Day
  Sex: Male
  Weight: 2 kg

DRUGS (2)
  1. LANTUS [Suspect]
     Indication: GESTATIONAL DIABETES
     Route: 064
     Dates: start: 20100322, end: 20100329
  2. APIDRA [Suspect]
     Indication: GESTATIONAL DIABETES
     Dosage: DOSE:4 UNIT(S)
     Route: 064
     Dates: start: 20100322, end: 20100322

REACTIONS (2)
  - DRUG EXPOSURE DURING PREGNANCY [None]
  - SMALL FOR DATES BABY [None]
